FAERS Safety Report 8309627-8 (Version None)
Quarter: 2012Q2

REPORT INFORMATION
  Report Type: 
  Country: None (occurrence: None)
  Receive Date: 20120425
  Receipt Date: 20120416
  Transmission Date: 20120825
  Serious: Yes (Other)
  Sender: FDA-Public Use
  Company Number: US-JNJFOC-20111204013

PATIENT
  Sex: Female
  Weight: 68.04 kg

DRUGS (4)
  1. REMICADE [Suspect]
     Indication: RHEUMATOID ARTHRITIS
     Route: 042
     Dates: start: 20100101
  2. REMICADE [Suspect]
     Route: 042
     Dates: start: 20100101
  3. METHOTREXATE [Concomitant]
     Indication: RHEUMATOID ARTHRITIS
     Dosage: .5MG/TABLET/.5MG /5 PILLS ON FRIDAY/ORAL
     Route: 048
     Dates: start: 20060101
  4. TRAMADOL HCL [Concomitant]
     Indication: PAIN
     Route: 048
     Dates: start: 20090101

REACTIONS (4)
  - SINUSITIS [None]
  - PAIN [None]
  - PSORIASIS [None]
  - DEPRESSION [None]
